FAERS Safety Report 9983049 (Version 1)
Quarter: 2014Q1

REPORT INFORMATION
  Report Type: Report from Study
  Country: US (occurrence: US)
  Receive Date: 20140307
  Receipt Date: 20140307
  Transmission Date: 20141002
  Serious: No
  Sender: FDA-Public Use
  Company Number: US-ABBVIE-13P-163-1179730-00

PATIENT
  Sex: Female
  Weight: 65.83 kg

DRUGS (5)
  1. HUMIRA [Suspect]
     Indication: CROHN^S DISEASE
     Route: 058
     Dates: start: 2011, end: 2011
  2. HUMIRA [Suspect]
     Dosage: 2 WEEKS AFTER THE 4 INJECTIONS
     Route: 058
     Dates: start: 2011
  3. LISINOPRIL [Concomitant]
     Indication: HYPERTENSION
     Route: 048
     Dates: start: 2003
  4. XANAX [Concomitant]
     Indication: ANXIETY
     Route: 048
  5. OMEPRAZOLE [Concomitant]
     Indication: GASTRIC PH DECREASED
     Route: 048

REACTIONS (2)
  - Injection site scar [Not Recovered/Not Resolved]
  - Injection site pain [Not Recovered/Not Resolved]
